FAERS Safety Report 21844017 (Version 3)
Quarter: 2023Q2

REPORT INFORMATION
  Report Type: Spontaneous
  Country: US (occurrence: US)
  Receive Date: 20230110
  Receipt Date: 20230601
  Transmission Date: 20230721
  Serious: No
  Sender: FDA-Public Use
  Company Number: US-ALLERGAN-2214865US

PATIENT
  Age: 85 Year
  Sex: Female

DRUGS (5)
  1. ESTRADIOL [Suspect]
     Active Substance: ESTRADIOL
     Indication: Product used for unknown indication
  2. DUAVEE [BAZEDOXIFENE;ESTROGENS CONJUGATED] [Concomitant]
     Indication: Ill-defined disorder
  3. SYNTHROID [Concomitant]
     Active Substance: LEVOTHYROXINE SODIUM
     Indication: Ill-defined disorder
  4. PREMARIN [Concomitant]
     Active Substance: ESTROGENS, CONJUGATED
     Indication: Ill-defined disorder
  5. ESTROPIPATE [Concomitant]
     Active Substance: ESTROPIPATE
     Indication: Ill-defined disorder

REACTIONS (1)
  - Alopecia [Unknown]
